FAERS Safety Report 14496555 (Version 2)
Quarter: 2018Q2

REPORT INFORMATION
  Report Type: Report from Study
  Country: None (occurrence: BR)
  Receive Date: 20180207
  Receipt Date: 20180430
  Transmission Date: 20180711
  Serious: Yes (Hospitalization, Other)
  Sender: FDA-Public Use
  Company Number: BR-ABBVIE-18K-020-2245696-00

PATIENT
  Age: 38 Year
  Sex: Female
  Weight: 80 kg

DRUGS (6)
  1. HUMIRA [Suspect]
     Active Substance: ADALIMUMAB
     Route: 058
     Dates: end: 20171230
  2. AZATHIOPRINE. [Concomitant]
     Active Substance: AZATHIOPRINE
     Indication: IMMUNODEFICIENCY
  3. HUMIRA [Suspect]
     Active Substance: ADALIMUMAB
     Dosage: INDUCTION DOSE WEEK 2
     Route: 058
     Dates: start: 20140128, end: 20140128
  4. HUMIRA [Suspect]
     Active Substance: ADALIMUMAB
     Indication: CROHN^S DISEASE
     Dosage: INDUCTION DOSE WEEK 0
     Route: 058
     Dates: start: 20140114, end: 20140114
  5. HUMIRA [Suspect]
     Active Substance: ADALIMUMAB
     Route: 058
     Dates: start: 2017
  6. BUSCOPAN [Concomitant]
     Active Substance: BUTYLSCOPOLAMINE BROMIDE
     Indication: PROCEDURAL PAIN

REACTIONS (15)
  - Weight increased [Recovered/Resolved]
  - Anaemia [Not Recovered/Not Resolved]
  - Injection site haemorrhage [Recovered/Resolved]
  - Cholelithiasis [Recovered/Resolved]
  - Gastrointestinal inflammation [Recovering/Resolving]
  - Gastrointestinal pain [Recovered/Resolved]
  - Influenza [Not Recovered/Not Resolved]
  - Gastrointestinal oedema [Recovered/Resolved]
  - Gastrointestinal infection [Recovered/Resolved]
  - Diarrhoea [Recovered/Resolved]
  - Intestinal prolapse [Recovered/Resolved]
  - Abdominal adhesions [Unknown]
  - Decreased appetite [Recovered/Resolved]
  - Gallbladder disorder [Recovered/Resolved]
  - Weight decreased [Recovered/Resolved]

NARRATIVE: CASE EVENT DATE: 2017
